FAERS Safety Report 6093657-3 (Version None)
Quarter: 2009Q1

REPORT INFORMATION
  Report Type: 
  Country: None (occurrence: None)
  Receive Date: 20090223
  Receipt Date: 20090223
  Transmission Date: 20090719
  Serious: Yes (Disabling)
  Sender: FDA-Public Use
  Company Number: None

PATIENT
  Age: 40 Year
  Sex: Female
  Weight: 49.4421 kg

DRUGS (1)
  1. MIRENA [Suspect]
     Dates: start: 20080512

REACTIONS (1)
  - ADVERSE DRUG REACTION [None]
